FAERS Safety Report 7874097-0 (Version None)
Quarter: 2011Q4

REPORT INFORMATION
  Report Type: 
  Country: None (occurrence: None)
  Receive Date: 20111030
  Receipt Date: 20110516
  Transmission Date: 20120403
  Serious: No
  Sender: FDA-Public Use
  Company Number: US-AMGEN-USASP2011025254

PATIENT
  Age: 43 Year
  Sex: Female

DRUGS (1)
  1. ENBREL [Suspect]
     Indication: RHEUMATOID ARTHRITIS
     Dosage: 50 MG, QWK
     Dates: start: 20110407

REACTIONS (8)
  - HEADACHE [None]
  - ECZEMA [None]
  - JOINT SWELLING [None]
  - SOMNOLENCE [None]
  - PRURITUS GENERALISED [None]
  - SCRATCH [None]
  - MIDDLE INSOMNIA [None]
  - INJECTION SITE PAIN [None]
